FAERS Safety Report 8515176-4 (Version None)
Quarter: 2012Q3

REPORT INFORMATION
  Report Type: 
  Country: None (occurrence: None)
  Receive Date: 20120717
  Receipt Date: 20120717
  Transmission Date: 20120928
  Serious: Yes (Death, Hospitalization)
  Sender: FDA-Public Use
  Company Number: US-GLAXOSMITHKLINE-A0984634A

PATIENT
  Age: 80 Year
  Sex: Male

DRUGS (6)
  1. MELPHALAN HYDROCHLORIDE [Suspect]
     Indication: MULTIPLE MYELOMA
     Dosage: 9MGM2 CYCLIC
     Route: 048
     Dates: start: 20111130
  2. PREDNISONE [Suspect]
     Indication: MULTIPLE MYELOMA
     Dosage: 100MG CYCLIC
     Route: 048
     Dates: start: 20111130
  3. ASPIRIN [Concomitant]
     Dosage: 325MG PER DAY
  4. STEROIDS [Concomitant]
  5. MORPHINE [Concomitant]
  6. THALIDOMIDE [Suspect]
     Indication: MULTIPLE MYELOMA
     Dosage: 100MG CYCLIC
     Route: 048
     Dates: start: 20111130

REACTIONS (2)
  - BRAIN OEDEMA [None]
  - BRAIN MASS [None]
